FAERS Safety Report 19472980 (Version 1)
Quarter: 2021Q2

REPORT INFORMATION
  Report Type: Other
  Country: US (occurrence: US)
  Receive Date: 20210629
  Receipt Date: 20210629
  Transmission Date: 20210717
  Serious: Yes (Hospitalization, Other)
  Sender: FDA-Public Use
  Company Number: US-ROCHE-1770161

PATIENT
  Sex: Female

DRUGS (21)
  1. ZOLPIDEM [Concomitant]
     Active Substance: ZOLPIDEM TARTRATE
  2. FOLIC ACID. [Concomitant]
     Active Substance: FOLIC ACID
  3. POTASSIUM CHLORIDE. [Concomitant]
     Active Substance: POTASSIUM CHLORIDE
  4. PRAVASTATIN. [Concomitant]
     Active Substance: PRAVASTATIN
  5. AMLODIPINE [Concomitant]
     Active Substance: AMLODIPINE BESYLATE
  6. ACTEMRA [Suspect]
     Active Substance: TOCILIZUMAB
     Indication: RHEUMATOID ARTHRITIS
     Dosage: SHE TOOK 4MG/KG, THE SECOND MONTH SHE TOOK 6MG/KG
     Route: 042
     Dates: start: 201410
  7. PROLIA [Concomitant]
     Active Substance: DENOSUMAB
     Indication: OSTEOPOROSIS
  8. HYDROCHLOROTHIAZIDE. [Concomitant]
     Active Substance: HYDROCHLOROTHIAZIDE
  9. PREDNISONE. [Concomitant]
     Active Substance: PREDNISONE
     Indication: RHEUMATOID ARTHRITIS
  10. ACTEMRA [Suspect]
     Active Substance: TOCILIZUMAB
     Indication: RHEUMATOID ARTHRITIS
  11. PROTONIX [Concomitant]
     Active Substance: PANTOPRAZOLE SODIUM
  12. LISINOPRIL. [Concomitant]
     Active Substance: LISINOPRIL
     Indication: HYPERTENSION
  13. HEPARIN [Concomitant]
     Active Substance: HEPARIN SODIUM
     Dosage: FOR 3 DAYS
     Route: 042
  14. ACTEMRA [Suspect]
     Active Substance: TOCILIZUMAB
     Route: 058
  15. ACTEMRA [Suspect]
     Active Substance: TOCILIZUMAB
     Dosage: 0.9 MLS (TOTAL 162 MG) INTO THE SKIN ONCE A WEEK
     Route: 058
     Dates: start: 20200113
  16. ACTEMRA [Suspect]
     Active Substance: TOCILIZUMAB
     Indication: RHEUMATOID ARTHRITIS
     Dosage: INJECT 0.9ML (162MG) SUBCUTANEOUSLY ONCE A WEEK INTO THE SKIN?EXPIRY DATE : 31/OCT/2022
     Route: 058
  17. METHOTREXATE. [Concomitant]
     Active Substance: METHOTREXATE
     Indication: RHEUMATOID ARTHRITIS
  18. ACTEMRA [Suspect]
     Active Substance: TOCILIZUMAB
     Indication: RHEUMATOID ARTHRITIS
     Dosage: 0.9 ML
     Route: 058
  19. ACTEMRA [Suspect]
     Active Substance: TOCILIZUMAB
     Route: 058
  20. VITAMIN B COMPLEX [Concomitant]
     Active Substance: CYANOCOBALAMIN\DEXPANTHENOL\NIACINAMIDE\PYRIDOXINE HYDROCHLORIDE\RIBOFLAVIN 5^-PHOSPHATE SODIUM\THIAMINE HYDROCHLORIDE\VITAMIN B COMPLEX
  21. ELIQUIS [Concomitant]
     Active Substance: APIXABAN
     Dosage: STARTED ON 20 MG AND NOW DOWN TO 10 MG A DAY. TAKES ONE PILL OF 5 MG IN THE (AM) AND ONE PILL OF 5 M

REACTIONS (11)
  - Pulmonary hypertension [Unknown]
  - Fatigue [Unknown]
  - Pulmonary embolism [Unknown]
  - Myalgia [Unknown]
  - Insomnia [Unknown]
  - Vein disorder [Not Recovered/Not Resolved]
  - Arthralgia [Unknown]
  - Musculoskeletal stiffness [Unknown]
  - Headache [Unknown]
  - Blood pressure inadequately controlled [Unknown]
  - Rheumatoid arthritis [Not Recovered/Not Resolved]
